FAERS Safety Report 5714335-3 (Version None)
Quarter: 2008Q1

REPORT INFORMATION
  Report Type: 
  Country: None (occurrence: None)
  Receive Date: 20080317
  Receipt Date: 20080317
  Transmission Date: 20080703
  Serious: Yes (Hospitalization)
  Sender: FDA-Public Use
  Company Number: None

PATIENT
  Age: 27 Year
  Sex: Female
  Weight: 37.3 kg

DRUGS (8)
  1. ACYCLOVIR [Suspect]
     Indication: HERPES SIMPLEX
     Dosage: 800 MG TWICE DAILY ORAL
     Route: 048
     Dates: start: 20071114, end: 20080215
  2. ISONIAZID [Concomitant]
  3. RIFAMPICIN [Concomitant]
  4. NEVIRAPINE [Concomitant]
  5. STAVUDINE [Concomitant]
  6. LAMIVUDINE [Concomitant]
  7. COTRIMOXAZOLE [Concomitant]
  8. PODOPHYLLIN [Concomitant]

REACTIONS (7)
  - CERVIX CARCINOMA STAGE 0 [None]
  - DIARRHOEA [None]
  - HYPOVOLAEMIC SHOCK [None]
  - MIGRAINE [None]
  - NAUSEA [None]
  - RASH MACULAR [None]
  - VOMITING [None]
